FAERS Safety Report 17329504 (Version 3)
Quarter: 2020Q1

REPORT INFORMATION
  Report Type: Spontaneous
  Country: US (occurrence: US)
  Receive Date: 20200127
  Receipt Date: 20200213
  Transmission Date: 20200409
  Serious: No
  Sender: FDA-Public Use
  Company Number: US-SA-2020SA017874

PATIENT
  Age: 40 Year
  Sex: Male

DRUGS (1)
  1. XYZAL ALLERGY 24HR [Suspect]
     Active Substance: LEVOCETIRIZINE DIHYDROCHLORIDE
     Indication: SINUSITIS
     Dosage: 12 DF, 1X
     Route: 065
     Dates: start: 20200120, end: 20200120

REACTIONS (5)
  - Product quality issue [Unknown]
  - Dizziness [Recovering/Resolving]
  - Overdose [Unknown]
  - Malaise [Recovering/Resolving]
  - Nausea [Recovering/Resolving]

NARRATIVE: CASE EVENT DATE: 20200120
